FAERS Safety Report 13788216 (Version 1)
Quarter: 2017Q3

REPORT INFORMATION
  Report Type: Spontaneous
  Country: US (occurrence: US)
  Receive Date: 20170725
  Receipt Date: 20170725
  Transmission Date: 20171127
  Serious: No
  Sender: FDA-Public Use
  Company Number: US-JNJFOC-20170527840

PATIENT
  Sex: Male

DRUGS (9)
  1. MS CONTIN [Concomitant]
     Active Substance: MORPHINE SULFATE
  2. BACLOFEN. [Concomitant]
     Active Substance: BACLOFEN
  3. CLARITIN [Concomitant]
     Active Substance: LORATADINE
  4. IMBRUVICA [Suspect]
     Active Substance: IBRUTINIB
     Indication: CHRONIC LYMPHOCYTIC LEUKAEMIA
     Route: 048
     Dates: start: 20141023
  5. ENALAPRIL [Concomitant]
     Active Substance: ENALAPRIL
  6. TYLENOL EXTRA STRENGTH [Concomitant]
     Active Substance: ACETAMINOPHEN
  7. VIAGRA [Concomitant]
     Active Substance: SILDENAFIL CITRATE
  8. LORAZEPAM. [Concomitant]
     Active Substance: LORAZEPAM
  9. OXYCODONE [Concomitant]
     Active Substance: OXYCODONE

REACTIONS (1)
  - Abdominal distension [Unknown]
